FAERS Safety Report 12731773 (Version 1)
Quarter: 2016Q3

REPORT INFORMATION
  Report Type: Spontaneous
  Country: US (occurrence: US)
  Receive Date: 20160909
  Receipt Date: 20160909
  Transmission Date: 20161109
  Serious: Yes (Disabling)
  Sender: FDA-Public Use
  Company Number: None

PATIENT
  Age: 55 Year
  Sex: Female
  Weight: 90.72 kg

DRUGS (24)
  1. PRO BROMIDE [Concomitant]
  2. BABY ASPRIN [Concomitant]
     Active Substance: ASPIRIN
  3. BLACK COHOSH [Concomitant]
     Active Substance: BLACK COHOSH
  4. GABAPENTIN. [Concomitant]
     Active Substance: GABAPENTIN
  5. XANAX [Concomitant]
     Active Substance: ALPRAZOLAM
  6. LASIX [Concomitant]
     Active Substance: FUROSEMIDE
  7. ATENOLOL. [Concomitant]
     Active Substance: ATENOLOL
  8. KOREAN GINSENG [Concomitant]
  9. INDOMETHACIN. [Concomitant]
     Active Substance: INDOMETHACIN
  10. EFFEXOR [Concomitant]
     Active Substance: VENLAFAXINE HYDROCHLORIDE
  11. LEVAQUIN [Concomitant]
     Active Substance: LEVOFLOXACIN
  12. LEVAQUIN [Suspect]
     Active Substance: LEVOFLOXACIN
     Indication: BRONCHITIS
     Dosage: IV + 7 PILLS IV + 7 PILLS
     Route: 042
     Dates: start: 20160422
  13. FENOFIBRATE MICRONIZED [Concomitant]
  14. PERCOCET [Concomitant]
     Active Substance: ACETAMINOPHEN\OXYCODONE HYDROCHLORIDE
  15. ELIQUIS [Concomitant]
     Active Substance: APIXABAN
  16. RAMIPRIL. [Concomitant]
     Active Substance: RAMIPRIL
  17. MELATONIN [Concomitant]
     Active Substance: MELATONIN
  18. IPRATROPIUM [Concomitant]
     Active Substance: IPRATROPIUM
  19. ISOSORBIDE DINITRATE. [Concomitant]
     Active Substance: ISOSORBIDE DINITRATE
  20. NITROSTAT [Concomitant]
     Active Substance: NITROGLYCERIN
  21. MEDROL [Concomitant]
     Active Substance: METHYLPREDNISOLONE
  22. PROTONIX [Concomitant]
     Active Substance: PANTOPRAZOLE SODIUM
  23. LEVAQUIN [Suspect]
     Active Substance: LEVOFLOXACIN
     Indication: CHRONIC OBSTRUCTIVE PULMONARY DISEASE
     Dosage: IV + 7 PILLS IV + 7 PILLS
     Route: 042
     Dates: start: 20160422
  24. ALBUTEROL. [Concomitant]
     Active Substance: ALBUTEROL

REACTIONS (4)
  - Pain [None]
  - Muscular weakness [None]
  - Grip strength decreased [None]
  - Asthenia [None]

NARRATIVE: CASE EVENT DATE: 20160424
